FAERS Safety Report 8010739-7 (Version None)
Quarter: 2011Q4

REPORT INFORMATION
  Report Type: 
  Country: None (occurrence: None)
  Receive Date: 20111228
  Receipt Date: 20111226
  Transmission Date: 20120403
  Serious: Yes (Other)
  Sender: FDA-Public Use
  Company Number: BR-PFIZER INC-2011313722

PATIENT
  Age: 58 Year
  Sex: Female
  Weight: 65.5 kg

DRUGS (5)
  1. FLUOXETINE [Concomitant]
     Indication: ANXIETY
     Dosage: 30 MG, 2X/DAY
  2. VARENICLINE TARTRATE [Suspect]
     Dosage: 1 MG, 2X/DAY
     Route: 048
     Dates: start: 20110101
  3. SIMVASTATIN [Concomitant]
     Indication: BLOOD CHOLESTEROL INCREASED
     Dosage: 20 MG, 1X/DAY
     Dates: start: 20090101
  4. CLONAZEPAM [Concomitant]
     Indication: ANXIETY
     Dosage: 2 MG, 3X/DAY
  5. VARENICLINE TARTRATE [Suspect]
     Indication: TOBACCO ABUSE
     Dosage: UNK
     Route: 048
     Dates: start: 20110923, end: 20110101

REACTIONS (4)
  - WITHDRAWAL SYNDROME [None]
  - WEIGHT INCREASED [None]
  - EMPHYSEMA [None]
  - NERVOUSNESS [None]
